FAERS Safety Report 4304860-4 (Version None)
Quarter: 2004Q1

REPORT INFORMATION
  Report Type: 
  Country: None (occurrence: None)
  Receive Date: 20040226
  Receipt Date: 20031230
  Transmission Date: 20041129
  Serious: Yes (Hospitalization)
  Sender: FDA-Public Use
  Company Number: US-GLAXOSMITHKLINE-A0490852A

PATIENT
  Sex: Female

DRUGS (4)
  1. WELLBUTRIN [Suspect]
     Indication: DEPRESSION
     Dosage: 150MG PER DAY
     Route: 048
     Dates: start: 20031223
  2. RESTORIL [Concomitant]
  3. AMBIEN [Concomitant]
  4. BLOOD PRESSURE MEDICATION [Concomitant]

REACTIONS (3)
  - BACK PAIN [None]
  - INSOMNIA [None]
  - MOUTH ULCERATION [None]
